FAERS Safety Report 8880976 (Version 1)
Quarter: 2012Q4

REPORT INFORMATION
  Report Type: 
  Country: US (occurrence: US)
  Receive Date: 20121101
  Receipt Date: 20121101
  Transmission Date: 20130627
  Serious: Yes (Hospitalization)
  Sender: FDA-Public Use
  Company Number: US-PFIZER INC-2012267801

PATIENT
  Age: 26 Year
  Sex: Female
  Weight: 107 kg

DRUGS (3)
  1. LYRICA [Suspect]
     Indication: NERVE PAIN
     Dosage: 50 mg, 2x/day
     Dates: start: 2009, end: 2010
  2. RITUXAN [Concomitant]
     Indication: MULTIPLE SCLEROSIS
     Dosage: UNK
  3. ZOLOFT [Concomitant]
     Indication: DEPRESSION
     Dosage: 100 mg, 2x/day

REACTIONS (12)
  - Multiple sclerosis relapse [Not Recovered/Not Resolved]
  - Paralysis [Recovering/Resolving]
  - Musculoskeletal stiffness [Unknown]
  - Drug ineffective [Unknown]
  - Musculoskeletal disorder [Not Recovered/Not Resolved]
  - Limb discomfort [Not Recovered/Not Resolved]
  - Pain of skin [Not Recovered/Not Resolved]
  - Neck pain [Not Recovered/Not Resolved]
  - Musculoskeletal pain [Not Recovered/Not Resolved]
  - Pain in extremity [Not Recovered/Not Resolved]
  - Back pain [Not Recovered/Not Resolved]
  - Gait disturbance [Not Recovered/Not Resolved]
